FAERS Safety Report 17368769 (Version 2)
Quarter: 2020Q1

REPORT INFORMATION
  Report Type: Report from Study
  Country: US (occurrence: US)
  Receive Date: 20200204
  Receipt Date: 20200218
  Transmission Date: 20200409
  Serious: Yes (Hospitalization)
  Sender: FDA-Public Use
  Company Number: US-ACTELION-A-NJ2020-201190

PATIENT
  Sex: Female
  Weight: 56.69 kg

DRUGS (1)
  1. OPSUMIT [Suspect]
     Active Substance: MACITENTAN
     Indication: PULMONARY HYPERTENSION
     Dosage: 10 MG, QD
     Route: 048

REACTIONS (8)
  - Weight increased [Unknown]
  - Oedema [Unknown]
  - Liver disorder [Unknown]
  - Fall [Unknown]
  - Terminal state [Unknown]
  - Fluid retention [Unknown]
  - Urinary tract infection [Unknown]
  - Condition aggravated [Unknown]
